FAERS Safety Report 24594299 (Version 1)
Quarter: 2024Q4

REPORT INFORMATION
  Report Type: Report from Study
  Country: GB (occurrence: GB)
  Receive Date: 20241108
  Receipt Date: 20241108
  Transmission Date: 20250114
  Serious: Yes (Disabling)
  Sender: SANDOZ
  Company Number: GB-002147023-NVSC2021GB281408

PATIENT
  Sex: Male

DRUGS (2)
  1. OMNITROPE [Suspect]
     Active Substance: SOMATROPIN
     Indication: Growth hormone deficiency
     Dosage: 0.10 MG, QD (ROUTE: AS DIRECTED)
     Route: 058
     Dates: start: 20211027
  2. OMNITROPE [Suspect]
     Active Substance: SOMATROPIN
     Indication: Hypopituitarism

REACTIONS (5)
  - Mobility decreased [Unknown]
  - Accident [Unknown]
  - Contusion [Unknown]
  - Wrong technique in product usage process [Unknown]
  - Product storage error [Unknown]
